FAERS Safety Report 23169969 (Version 1)
Quarter: 2023Q4

REPORT INFORMATION
  Report Type: Spontaneous
  Country: US (occurrence: US)
  Receive Date: 20231110
  Receipt Date: 20231110
  Transmission Date: 20240110
  Serious: Yes (Hospitalization, Other)
  Sender: FDA-Public Use
  Company Number: US-BRISTOL-MYERS SQUIBB COMPANY-2023-159828

PATIENT
  Age: 73 Year
  Sex: Male
  Weight: 148 kg

DRUGS (1)
  1. REVLIMID [Suspect]
     Active Substance: LENALIDOMIDE
     Indication: Plasma cell myeloma
     Dosage: DOSE : 25 MG;     FREQ : ONE A DAY FOR 21 DAYS AND A 7-DAY BREAK
     Route: 048
     Dates: start: 20221230

REACTIONS (2)
  - Staphylococcal bacteraemia [Unknown]
  - Infected skin ulcer [Unknown]
